FAERS Safety Report 4603317-0 (Version None)
Quarter: 2005Q1

REPORT INFORMATION
  Report Type: 
  Country: None (occurrence: None)
  Receive Date: 20050309
  Receipt Date: 20050224
  Transmission Date: 20050727
  Serious: Yes (Disabling)
  Sender: FDA-Public Use
  Company Number: NL-MERCK-0502NLD00052

PATIENT
  Age: 35 Year
  Sex: Female

DRUGS (10)
  1. PRAVASTATIN SODIUM [Concomitant]
     Route: 048
  2. MYCOPHENOLATE MOFETIL [Concomitant]
     Route: 048
  3. CYCLOSPORINE [Concomitant]
     Route: 048
  4. ATENOLOL [Concomitant]
     Route: 048
  5. NIFEDIPINE [Concomitant]
     Route: 048
  6. CYPROTERONE ACETATE AND ETHINYL ESTRADIOL [Concomitant]
     Route: 065
     Dates: start: 20050110
  7. CHOLECALCIFEROL [Concomitant]
     Route: 048
  8. CLODRONATE DISODIUM [Concomitant]
     Route: 048
  9. PREDNISONE [Concomitant]
     Route: 048
  10. ZETIA [Suspect]
     Indication: HYPERCHOLESTEROLAEMIA
     Route: 048
     Dates: start: 20050105

REACTIONS (1)
  - RETINAL VEIN THROMBOSIS [None]
